FAERS Safety Report 5078969-4 (Version None)
Quarter: 2006Q3

REPORT INFORMATION
  Report Type: 
  Country: None (occurrence: None)
  Receive Date: 20060808
  Receipt Date: 20060724
  Transmission Date: 20061208
  Serious: Yes (Hospitalization, Other)
  Sender: FDA-Public Use
  Company Number: US200511000369

PATIENT
  Age: 80 Year
  Sex: Female
  Weight: 56.2 kg

DRUGS (13)
  1. FORTEO [Suspect]
     Indication: OSTEOPOROSIS
     Dates: start: 20050301, end: 20051101
  2. FORTEO [Concomitant]
  3. GUAIFENESIN [Concomitant]
  4. MICARDIS HCT [Concomitant]
  5. ZOLOFT [Concomitant]
  6. CITRACAL (CALCIUM CITRATE) [Concomitant]
  7. ROCALTROL [Concomitant]
  8. SKELAXIN [Concomitant]
  9. KLONOPIN [Concomitant]
  10. CENTRUM SILVER (ASCORBIC ACID, CALCIUM, MINERALS NOS, RETINOL, TOCOPHE [Concomitant]
  11. DOXAZOSIN MESYLATE [Concomitant]
  12. PROCRIT [Concomitant]
  13. ULTRAM [Concomitant]

REACTIONS (7)
  - BACK INJURY [None]
  - FALL [None]
  - HEAD INJURY [None]
  - HEADACHE [None]
  - INTERVERTEBRAL DISC PROTRUSION [None]
  - NECK PAIN [None]
  - SCRATCH [None]
